FAERS Safety Report 7236791-4 (Version None)
Quarter: 2011Q1

REPORT INFORMATION
  Report Type: 
  Country: None (occurrence: None)
  Receive Date: 20110120
  Receipt Date: 20110106
  Transmission Date: 20110831
  Serious: Yes (Other)
  Sender: FDA-Public Use
  Company Number: US-BAYER-2011-002420

PATIENT
  Sex: Female
  Weight: 63 kg

DRUGS (2)
  1. ACETYLSALICYLIC ACID [Concomitant]
  2. ASPIRIN [Suspect]
     Indication: ROAD TRAFFIC ACCIDENT

REACTIONS (2)
  - DEAFNESS [None]
  - TINNITUS [None]
